FAERS Safety Report 21141095 (Version 2)
Quarter: 2022Q3

REPORT INFORMATION
  Report Type: Spontaneous
  Country: GB (occurrence: None)
  Receive Date: 20220728
  Receipt Date: 20220903
  Transmission Date: 20221026
  Serious: Yes (Congenital Anomaly, Other)
  Sender: FDA-Public Use
  Company Number: GB-MHRA-MED-202207061458273120-HGWBV

PATIENT

DRUGS (7)
  1. LEVETIRACETAM [Suspect]
     Active Substance: LEVETIRACETAM
     Indication: Juvenile myoclonic epilepsy
     Dosage: 500 MG TWICE A DAY; ;
  2. EPILIM [Suspect]
     Active Substance: VALPROATE SODIUM
     Indication: Juvenile myoclonic epilepsy
     Dosage: 500 MG TWICE A DAY; ;
     Dates: start: 19930101
  3. LAMOTRIGINE [Suspect]
     Active Substance: LAMOTRIGINE
     Indication: Juvenile myoclonic epilepsy
     Dosage: 75 MG TWICE A DAY; ;
     Dates: start: 20080101
  4. CITALOPRAM, [Concomitant]
     Indication: Anxiety
     Dates: end: 20220624
  5. FOLIC ACID [Concomitant]
     Active Substance: FOLIC ACID
     Indication: Vitamin supplementation
  6. PROPRANOLOL [Concomitant]
     Active Substance: PROPRANOLOL HYDROCHLORIDE
     Indication: Migraine
     Dates: end: 20220624
  7. SUMATRIPTAN [Concomitant]
     Active Substance: SUMATRIPTAN
     Indication: Migraine
     Dates: end: 20220624

REACTIONS (2)
  - Maternal exposure during pregnancy [Unknown]
  - Teratogenicity [Not Recovered/Not Resolved]

NARRATIVE: CASE EVENT DATE: 20220515
